FAERS Safety Report 6674010-8 (Version None)
Quarter: 2010Q2

REPORT INFORMATION
  Report Type: 
  Country: None (occurrence: None)
  Receive Date: 20100409
  Receipt Date: 20100331
  Transmission Date: 20101027
  Serious: Yes (Hospitalization, Other)
  Sender: FDA-Public Use
  Company Number: US-JNJFOC-20100101016

PATIENT
  Sex: Male
  Weight: 122.47 kg

DRUGS (14)
  1. DURAGESIC-100 [Suspect]
     Indication: PAIN
     Route: 062
  2. DURAGESIC-100 [Suspect]
     Route: 062
  3. DURAGESIC-100 [Suspect]
     Route: 062
  4. TRICOR [Concomitant]
     Indication: BLOOD TRIGLYCERIDES
     Route: 048
  5. ALTACE [Concomitant]
     Indication: RENAL DISORDER
     Route: 048
  6. PRILOSEC [Concomitant]
     Indication: HYPERCHLORHYDRIA
     Route: 048
  7. LIPITOR [Concomitant]
     Indication: BLOOD CHOLESTEROL
     Route: 048
  8. ACTOS [Concomitant]
     Indication: DIABETES MELLITUS
     Route: 048
  9. RISPERIDONE [Concomitant]
     Indication: DEPRESSION
     Route: 048
  10. LASIX [Concomitant]
     Indication: DIURETIC THERAPY
     Route: 048
  11. WELLBUTRIN XL [Concomitant]
     Indication: DEPRESSION
     Route: 048
  12. AMBIEN CR [Concomitant]
     Indication: SLEEP DISORDER
     Route: 048
  13. PERCOCET [Concomitant]
     Indication: PAIN
     Dosage: 7.5 MG/325
     Route: 048
  14. FLEXERIL [Concomitant]
     Indication: MUSCLE SPASMS
     Route: 048

REACTIONS (6)
  - FALL [None]
  - GASTRIC DISORDER [None]
  - PAIN [None]
  - STAPHYLOCOCCAL INFECTION [None]
  - THERAPEUTIC RESPONSE DECREASED [None]
  - URINARY TRACT DISORDER [None]
